FAERS Safety Report 7032905-X (Version None)
Quarter: 2010Q4

REPORT INFORMATION
  Report Type: 
  Country: None (occurrence: None)
  Receive Date: 20101007
  Receipt Date: 20100930
  Transmission Date: 20110411
  Serious: Yes (Death, Hospitalization, Disabling)
  Sender: FDA-Public Use
  Company Number: JP-JNJFOC-20101000468

PATIENT
  Sex: Female
  Weight: 69 kg

DRUGS (16)
  1. DOXIL [Suspect]
     Indication: OVARIAN CANCER RECURRENT
     Route: 042
  2. LOXONIN [Suspect]
     Indication: PRODUCT USED FOR UNKNOWN INDICATION
     Route: 048
  3. OXYCONTIN [Concomitant]
     Route: 048
  4. PAXIL [Concomitant]
     Route: 048
  5. HEPARIN [Concomitant]
     Indication: PROPHYLAXIS
     Route: 061
  6. MEYLON [Concomitant]
     Indication: RENAL FAILURE CHRONIC
     Route: 042
  7. PURSENNID [Concomitant]
     Route: 048
  8. GASPORT [Concomitant]
     Route: 048
  9. NEO-MINOPHAGEN C [Concomitant]
     Indication: HEPATIC FUNCTION ABNORMAL
     Route: 042
  10. KALIMATE [Concomitant]
     Indication: HYPERKALAEMIA
     Route: 048
  11. LASIX [Concomitant]
     Indication: HEPATIC FUNCTION ABNORMAL
     Route: 042
  12. ALBUMIN (HUMAN) [Concomitant]
     Indication: HEPATIC FUNCTION ABNORMAL
     Route: 042
  13. CALCICOL [Concomitant]
     Indication: RENAL FAILURE CHRONIC
     Route: 042
  14. FENTANYL [Concomitant]
     Route: 042
  15. KAYEXALATE [Concomitant]
     Indication: RENAL FAILURE CHRONIC
     Route: 048
  16. OXINORM [Concomitant]
     Route: 048

REACTIONS (3)
  - HEPATIC FUNCTION ABNORMAL [None]
  - OVARIAN CANCER [None]
  - RENAL FAILURE CHRONIC [None]
